FAERS Safety Report 11184296 (Version 1)
Quarter: 2015Q2

REPORT INFORMATION
  Report Type: Spontaneous
  Country: TW (occurrence: None)
  Receive Date: 20150610
  Receipt Date: 20150610
  Transmission Date: 20150821
  Serious: Yes (Other)
  Sender: FDA-Public Use
  Company Number: 2015AMD00085

PATIENT
  Age: 19 Year
  Sex: Male

DRUGS (1)
  1. EPINEPHRINE (EPINEPHRINE) INJECTION [Suspect]
     Active Substance: EPINEPHRINE
     Indication: URTICARIA
     Dosage: 1 MG, ONCE, INTRAVENOUS
     Route: 042

REACTIONS (5)
  - Blood pressure systolic increased [None]
  - Overdose [None]
  - Myocardial ischaemia [None]
  - Atrial fibrillation [None]
  - Incorrect route of drug administration [None]
